FAERS Safety Report 5951570-3 (Version None)
Quarter: 2008Q4

REPORT INFORMATION
  Report Type: 
  Country: None (occurrence: None)
  Receive Date: 20081113
  Receipt Date: 20081105
  Transmission Date: 20090506
  Serious: Yes (Other)
  Sender: FDA-Public Use
  Company Number: PHHY2008DE12745

PATIENT
  Sex: Male
  Weight: 100 kg

DRUGS (9)
  1. RASILEZ [Suspect]
     Indication: HYPERTENSION
     Dosage: 150 MG, BID
     Dates: start: 20080501, end: 20080701
  2. RASILEZ [Suspect]
     Dosage: 300 MG
     Dates: start: 20080601
  3. BYETTA [Concomitant]
     Indication: TYPE 2 DIABETES MELLITUS
     Dosage: UNK
     Dates: start: 20080301
  4. CANDESARTAN CILEXETIL [Concomitant]
     Dosage: 16 MG/D
  5. TORSEMIDE [Concomitant]
     Dosage: UNK
  6. ALLOPURINOL [Concomitant]
     Dosage: UNK
  7. BETA BLOCKING AGENTS [Concomitant]
     Dosage: UNK
  8. ASPIRIN [Concomitant]
     Dosage: UNK
  9. STATIN [Concomitant]
     Dosage: UNK

REACTIONS (7)
  - ANAEMIA [None]
  - BLOOD CREATININE INCREASED [None]
  - BLOOD UREA INCREASED [None]
  - DIZZINESS [None]
  - HYPOTENSION [None]
  - RENAL FAILURE [None]
  - SERUM FERRITIN INCREASED [None]
